FAERS Safety Report 5955667-3 (Version None)
Quarter: 2008Q4

REPORT INFORMATION
  Report Type: 
  Country: None (occurrence: None)
  Receive Date: 20081112
  Receipt Date: 20081031
  Transmission Date: 20090506
  Serious: Yes (Other)
  Sender: FDA-Public Use
  Company Number: GXKR2008LB10411

PATIENT
  Age: 43 Year
  Sex: Male
  Weight: 100 kg

DRUGS (5)
  1. PYRIDOSTIGMINE BROMIDE [Suspect]
     Indication: MYASTHENIA GRAVIS
     Dosage: 180 MG, QD
  2. PROPOFOL [Suspect]
     Indication: ANAESTHESIA
     Dosage: 2.5 MG/KG, INTRAVENOUS; 10 MG/KG/MIN, INTRAVENOUS
     Route: 042
  3. REMIFENTANIL (REMIFENTANIL) [Suspect]
     Indication: ANAESTHESIA
     Dosage: 2 UG/KG OVER 60 SECONDS, INTRAVENOUS; 2 UG/KG/MIN, INTRAVENOUS; 0.1 UG/KG/MIN, INTRAVENOUS
     Route: 042
  4. GLYCOPYRROLATE [Concomitant]
  5. LIDOCAINE [Concomitant]

REACTIONS (4)
  - BRADYCARDIA [None]
  - BRONCHOSPASM [None]
  - CHOLINERGIC SYNDROME [None]
  - HYPOTENSION [None]
